FAERS Safety Report 7206232-1 (Version None)
Quarter: 2010Q4

REPORT INFORMATION
  Report Type: 
  Country: None (occurrence: None)
  Receive Date: 20101217
  Receipt Date: 20101209
  Transmission Date: 20110411
  Serious: Yes (Death)
  Sender: FDA-Public Use
  Company Number: TRP_07444_2010

PATIENT
  Age: 69 Year
  Sex: Male

DRUGS (1)
  1. AMPHOTERICIN B [Suspect]
     Indication: MUCORMYCOSIS
     Dosage: DF

REACTIONS (2)
  - CEREBRAL FUNGAL INFECTION [None]
  - SEPSIS [None]
